FAERS Safety Report 8836690 (Version 1)
Quarter: 2012Q4

REPORT INFORMATION
  Report Type: Spontaneous
  Country: GB (occurrence: None)
  Receive Date: 20121009
  Receipt Date: 20121009
  Transmission Date: 20130627
  Serious: Yes (Other)
  Sender: FDA-Public Use
  Company Number: GB-BANPHARM-20120202

PATIENT
  Age: 50 Year
  Sex: Female
  Weight: 160 kg

DRUGS (2)
  1. IBUPROFEN UNKNOWN PRODUCT [Suspect]
     Route: 048
     Dates: end: 2012
  2. MEDICINAL PRODUCT MORPHINE [Concomitant]

REACTIONS (3)
  - Rectal haemorrhage [None]
  - Abdominal pain upper [None]
  - Night sweats [None]
